FAERS Safety Report 12509741 (Version 1)
Quarter: 2016Q2

REPORT INFORMATION
  Report Type: Spontaneous
  Country: US (occurrence: US)
  Receive Date: 20160629
  Receipt Date: 20160629
  Transmission Date: 20160815
  Serious: Yes (Disabling)
  Sender: FDA-Public Use
  Company Number: US-ASTRAZENECA-2016SE68559

PATIENT
  Age: 21487 Day
  Sex: Male

DRUGS (39)
  1. METOPROLOL TARTRATE. [Suspect]
     Active Substance: METOPROLOL TARTRATE
     Route: 048
  2. VIAGRA [Concomitant]
     Active Substance: SILDENAFIL CITRATE
     Dosage: 1.0DF AS REQUIRED
     Route: 048
     Dates: start: 20121003
  3. TIZANIDINE HCL [Concomitant]
     Active Substance: TIZANIDINE HYDROCHLORIDE
     Dosage: ONE TABLET EVERY 8 HOURS AS NEEDED
     Route: 048
  4. SYRINGE [Concomitant]
     Active Substance: DEVICE
     Dosage: 22 G X 1-1/2 EVERY TWO WEEKS
     Route: 030
     Dates: start: 20131031
  5. FLUCONAZOLE. [Concomitant]
     Active Substance: FLUCONAZOLE
     Route: 048
  6. GEMFIBROZIL. [Concomitant]
     Active Substance: GEMFIBROZIL
     Route: 048
  7. LYRICA [Concomitant]
     Active Substance: PREGABALIN
     Indication: NEUROPATHY PERIPHERAL
     Route: 048
  8. GARCINIA CAMBOGIA-CHROMIUM [Concomitant]
     Dosage: 500-200 MG-MCG
     Route: 048
  9. POTASSIUM GLUCONATE [Concomitant]
     Active Substance: POTASSIUM GLUCONATE
     Route: 048
  10. OMEGA 3 [Concomitant]
     Active Substance: OMEGA-3 FATTY ACIDS
     Route: 048
  11. VITAMIN D3 [Concomitant]
     Active Substance: CHOLECALCIFEROL
     Route: 048
  12. FLUTICASONE PROPIONATE. [Concomitant]
     Active Substance: FLUTICASONE PROPIONATE
     Indication: HYPERSENSITIVITY
     Dosage: 50 MCG, 1 SPRAY EACH NOSTRIL AS NEEDED ONCE A DAY
     Route: 045
  13. GLIMEPIRIDE. [Concomitant]
     Active Substance: GLIMEPIRIDE
     Indication: DIABETES MELLITUS
     Route: 048
  14. MIGRAINE RELIEF [Concomitant]
     Active Substance: ACETAMINOPHEN\ASPIRIN\CAFFEINE
     Dosage: 250-250-65 MG, 2 TABLETS AS NEEDED EVERY 6 HOURS
     Route: 048
  15. ANUCORT-HC [Concomitant]
     Active Substance: HYDROCORTISONE ACETATE
     Route: 054
     Dates: start: 20130718
  16. FIBERCON [Concomitant]
     Active Substance: CALCIUM POLYCARBOPHIL
     Indication: ABDOMINAL DISCOMFORT
     Route: 048
  17. LYRICA [Concomitant]
     Active Substance: PREGABALIN
     Indication: NEUROPATHY PERIPHERAL
     Route: 048
     Dates: start: 20121003
  18. TESTOSTERONE CYPIONATE. [Concomitant]
     Active Substance: TESTOSTERONE CYPIONATE
     Dosage: 200 MG/ML, 0.5 ML EVERY TWO WEEKS
     Route: 030
     Dates: start: 20131031
  19. VITAMIN B COMPLEX [Concomitant]
     Active Substance: CYANOCOBALAMIN\DEXPANTHENOL\NIACINAMIDE\PYRIDOXINE HYDROCHLORIDE\RIBOFLAVIN 5^-PHOSPHATE SODIUM\THIAMINE HYDROCHLORIDE\VITAMIN B COMPLEX
     Route: 048
  20. AMLODIPINE BESYLATE. [Concomitant]
     Active Substance: AMLODIPINE BESYLATE
     Indication: BLOOD PRESSURE ABNORMAL
     Route: 048
  21. COMPAZINE [Concomitant]
     Active Substance: PROCHLORPERAZINE MALEATE
     Indication: NAUSEA
     Dosage: 1 TABLET AS NEEDED THREE TIMES A DAY
     Route: 048
  22. PRAVACHOL [Concomitant]
     Active Substance: PRAVASTATIN SODIUM
  23. SYMBICORT [Suspect]
     Active Substance: BUDESONIDE\FORMOTEROL FUMARATE DIHYDRATE
     Dosage: UNKNOWN DOSE AND FREQUENCY UNKNOWN
     Route: 055
  24. OMEPRAZOLE. [Suspect]
     Active Substance: OMEPRAZOLE
     Indication: GASTRIC DISORDER
     Route: 048
  25. PRAVASTATIN SODIUM. [Concomitant]
     Active Substance: PRAVASTATIN SODIUM
     Indication: BLOOD CHOLESTEROL ABNORMAL
     Route: 048
  26. FENTANYL. [Concomitant]
     Active Substance: FENTANYL
     Dosage: 75 MCG/HR 1 PATCH TO SKIN EVERY 3 DAYS
     Route: 062
  27. TAMSULOSIN HCL [Concomitant]
     Active Substance: TAMSULOSIN
     Route: 048
  28. NEURONTIN [Concomitant]
     Active Substance: GABAPENTIN
  29. LANTUS SOLOSTAR [Concomitant]
     Active Substance: INSULIN GLARGINE
     Dosage: 100 UNIT/ML, 80 UNITS ONCE A DAY ADJUST MAY ADJUST UP TO 100 U PER DAY
     Route: 058
  30. ASPIRIN. [Concomitant]
     Active Substance: ASPIRIN
     Route: 048
  31. ACETAMINOPHEN\HYDROCODONE BITARTRATE [Concomitant]
     Active Substance: ACETAMINOPHEN\HYDROCODONE BITARTRATE
     Indication: PAIN
     Dosage: 10-325 MG, 2 TABLETS AS NEEDED THREE TIMED A DAY
     Route: 048
  32. DOCUSATE SODIUM. [Concomitant]
     Active Substance: DOCUSATE SODIUM
     Indication: CONSTIPATION
     Dosage: 1-2 CAPSULE AS NEEDED ONCE A DAY
     Route: 048
  33. FLONASE [Concomitant]
     Active Substance: FLUTICASONE PROPIONATE
     Dosage: 50 MCG, 1 SPRAY INTO EACH NOSTRIL ONCE DAILY
  34. CLOPIDOGREL BISULFATE. [Concomitant]
     Active Substance: CLOPIDOGREL BISULFATE
     Route: 048
  35. GEMFIBROZIL. [Concomitant]
     Active Substance: GEMFIBROZIL
     Indication: BLOOD TRIGLYCERIDES ABNORMAL
     Dosage: 600, ONE AND ONE-HALF TWICE DAILY
     Route: 048
  36. LISINOPRIL AND HYDROCHLOROTHIAZIDE [Suspect]
     Active Substance: HYDROCHLOROTHIAZIDE\LISINOPRIL
     Indication: BLOOD PRESSURE ABNORMAL
     Dosage: 20-12.5, ONE TABLET TWICE DAILY
     Route: 048
  37. BUPROPION HCL [Concomitant]
     Active Substance: BUPROPION HYDROCHLORIDE
     Indication: AFFECTIVE DISORDER
     Route: 048
  38. METFORMIN HCL [Concomitant]
     Active Substance: METFORMIN HYDROCHLORIDE
     Indication: DIABETES MELLITUS
     Route: 048
  39. VITAMIN C [Concomitant]
     Active Substance: ASCORBIC ACID
     Route: 048

REACTIONS (10)
  - Diabetes mellitus [Unknown]
  - Stomatitis [Unknown]
  - Mobility decreased [Unknown]
  - Drug hypersensitivity [Unknown]
  - Dyspnoea [Unknown]
  - Cardiomyopathy [Unknown]
  - Costochondritis [Unknown]
  - Headache [Unknown]
  - Chronic obstructive pulmonary disease [Not Recovered/Not Resolved]
  - Neuropathy peripheral [Not Recovered/Not Resolved]

NARRATIVE: CASE EVENT DATE: 20111007
